FAERS Safety Report 5159137-4 (Version None)
Quarter: 2006Q4

REPORT INFORMATION
  Report Type: 
  Country: None (occurrence: None)
  Receive Date: 20061117
  Receipt Date: 20061103
  Transmission Date: 20070319
  Serious: Yes (Hospitalization)
  Sender: FDA-Public Use
  Company Number: 8017955

PATIENT
  Age: 28 Month
  Sex: Male
  Weight: 13.5 kg

DRUGS (1)
  1. EQUASYM [Suspect]
     Dosage: 15 MG ONCE PO
     Route: 048
     Dates: start: 20060709, end: 20060709

REACTIONS (2)
  - ACCIDENTAL DRUG INTAKE BY CHILD [None]
  - SALIVARY HYPERSECRETION [None]
